FAERS Safety Report 25395686 (Version 2)
Quarter: 2025Q2

REPORT INFORMATION
  Report Type: Spontaneous
  Country: AU (occurrence: AU)
  Receive Date: 20250604
  Receipt Date: 20250613
  Transmission Date: 20250717
  Serious: Yes (Other)
  Sender: INSUD PHARMA
  Company Number: AU-EXELTIS PHARMACEUTICAL HOLDING, S.L.-2505AU04162

PATIENT
  Age: 28 Year
  Sex: Female

DRUGS (1)
  1. DROSPIRENONE [Suspect]
     Active Substance: DROSPIRENONE
     Indication: Endometriosis
     Dosage: 4 MILLIGRAM, QD AT NIGHT TIME
     Route: 048
     Dates: start: 20250502, end: 20250503

REACTIONS (7)
  - Dyspnoea [Recovered/Resolved]
  - Abdominal distension [Recovered/Resolved]
  - Chest pain [Recovered/Resolved]
  - Fibrin D dimer increased [Recovered/Resolved]
  - Dizziness [Recovered/Resolved]
  - Vomiting [Recovered/Resolved]
  - Product use in unapproved indication [Unknown]

NARRATIVE: CASE EVENT DATE: 20250502
